FAERS Safety Report 11704501 (Version 3)
Quarter: 2015Q4

REPORT INFORMATION
  Report Type: Spontaneous
  Country: US (occurrence: US)
  Receive Date: 20151106
  Receipt Date: 20151203
  Transmission Date: 20160304
  Serious: No
  Sender: FDA-Public Use
  Company Number: US-PFIZER INC-2015376516

PATIENT
  Age: 83 Year
  Sex: Male
  Weight: 68 kg

DRUGS (3)
  1. METFORMIN [Concomitant]
     Active Substance: METFORMIN HYDROCHLORIDE
     Dosage: UNK, 2X/DAY (HE WAS TAKING METFORMIN IN THE MORNING AFTER BREAKFAST AND TAKE IT IN THE EVENING)
  2. VIAGRA [Suspect]
     Active Substance: SILDENAFIL CITRATE
     Indication: ERECTILE DYSFUNCTION
     Dosage: 50 MG, UNK (TOOK 4 1/2 TABLETS)
  3. VIAGRA [Suspect]
     Active Substance: SILDENAFIL CITRATE
     Dosage: 50 MG, UNK (HE TOOK IT AT 7 PM)

REACTIONS (3)
  - Intentional product use issue [Unknown]
  - Drug effect delayed [Unknown]
  - Drug ineffective [Unknown]
